FAERS Safety Report 23340207 (Version 1)
Quarter: 2023Q4

REPORT INFORMATION
  Report Type: Spontaneous
  Country: CN (occurrence: CN)
  Receive Date: 20231227
  Receipt Date: 20231227
  Transmission Date: 20240110
  Serious: Yes (Other)
  Sender: FDA-Public Use
  Company Number: CN-BoehringerIngelheim-2023-BI-279264

PATIENT
  Age: 71 Year
  Sex: Male

DRUGS (2)
  1. AFATINIB [Suspect]
     Active Substance: AFATINIB
     Indication: Lung adenocarcinoma
  2. PEMETREXED [Concomitant]
     Active Substance: PEMETREXED
     Dosage: 500 MG/M2

REACTIONS (2)
  - Malignant neoplasm progression [Recovering/Resolving]
  - Condition aggravated [Recovered/Resolved]
